FAERS Safety Report 9528077 (Version 2)
Quarter: 2013Q3

REPORT INFORMATION
  Report Type: Report from Study
  Country: CA (occurrence: CA)
  Receive Date: 20130917
  Receipt Date: 20130926
  Transmission Date: 20140515
  Serious: Yes (Other)
  Sender: FDA-Public Use
  Company Number: CA-JNJFOC-20130905989

PATIENT
  Sex: Female
  Weight: 65.77 kg

DRUGS (1)
  1. STELARA [Suspect]
     Indication: PSORIASIS
     Route: 058
     Dates: start: 20120808, end: 2013

REACTIONS (3)
  - Immune system disorder [Unknown]
  - Infection [Unknown]
  - Malaise [Unknown]
